FAERS Safety Report 4778097-9 (Version None)
Quarter: 2005Q3

REPORT INFORMATION
  Report Type: 
  Country: None (occurrence: None)
  Receive Date: 20050923
  Receipt Date: 20050923
  Transmission Date: 20060218
  Serious: Yes (Hospitalization, Other)
  Sender: FDA-Public Use
  Company Number: None

PATIENT
  Sex: Female
  Weight: 81.4 kg

DRUGS (8)
  1. FLUOROURACIL [Suspect]
     Indication: BREAST CANCER
     Dosage: SEE IMAGE
     Route: 042
     Dates: start: 20050818, end: 20050818
  2. EPIRUBICIN [Suspect]
     Dosage: SEE IMAGE
     Route: 042
     Dates: start: 20050818, end: 20050818
  3. CYCLOPHOSPHAMIDE [Suspect]
     Dosage: SEE IMAGE
     Route: 042
     Dates: start: 20050818, end: 20050818
  4. CELECOXIB [Suspect]
     Dosage: SEE IMAGE
     Route: 048
     Dates: start: 20050818
  5. PLACEBO [Suspect]
  6. TAXOXIFEN [Suspect]
  7. AROMATASE INHIBITOR [Suspect]
  8. RADIATION [Suspect]

REACTIONS (3)
  - CHEST DISCOMFORT [None]
  - PULMONARY EMBOLISM [None]
  - THROMBOSIS [None]
